FAERS Safety Report 9106899 (Version 1)
Quarter: 2013Q1

REPORT INFORMATION
  Report Type: Spontaneous
  Country: US (occurrence: US)
  Receive Date: 20130221
  Receipt Date: 20130221
  Transmission Date: 20140127
  Serious: Yes (Other)
  Sender: FDA-Public Use
  Company Number: US-RB-049673-13

PATIENT
  Age: 73 Year
  Sex: Female

DRUGS (3)
  1. MUCINEX FAST MAX ADULT COLD + SINUS [Suspect]
     Indication: PRODUCT USED FOR UNKNOWN INDICATION
     Dosage: PATIENT LAST TOOK THE PRODUCT ON 28-JAN-2013
     Route: 048
     Dates: start: 20130125
  2. MUCINEX FAST MAX ADULT COLD + SINUS [Suspect]
  3. MUCINEX FAST MAX ADULT COLD + SINUS [Suspect]

REACTIONS (2)
  - Epistaxis [Recovered/Resolved]
  - Blood pressure increased [Recovered/Resolved]
